FAERS Safety Report 7671971-5 (Version None)
Quarter: 2011Q4

REPORT INFORMATION
  Report Type: 
  Country: None (occurrence: None)
  Receive Date: 20110809
  Receipt Date: 20110727
  Transmission Date: 20120403
  Serious: Yes (Other)
  Sender: FDA-Public Use
  Company Number: GB-GLAXOSMITHKLINE-B0735305A

PATIENT
  Age: 28 Year
  Sex: Male

DRUGS (7)
  1. RITONAVIR [Suspect]
     Indication: HIV INFECTION
  2. CEFOTAXIME [Concomitant]
     Indication: ENCEPHALITIS
  3. ACYCLOVIR [Concomitant]
     Indication: ENCEPHALITIS
  4. LAMIVUDINE (EPIVIR HBV) [Suspect]
     Indication: HIV INFECTION
  5. ZIDOVUDINE [Suspect]
     Indication: HIV INFECTION
  6. CORTICOSTEROIDS [Suspect]
     Indication: PRODUCT USED FOR UNKNOWN INDICATION
  7. DARUNAVIR ETHANOLATE [Suspect]
     Indication: HIV INFECTION
     Route: 048

REACTIONS (1)
  - AMNESIA [None]
